FAERS Safety Report 5655782-8 (Version None)
Quarter: 2008Q1

REPORT INFORMATION
  Report Type: 
  Country: None (occurrence: None)
  Receive Date: 20080307
  Receipt Date: 20080229
  Transmission Date: 20080703
  Serious: No
  Sender: FDA-Public Use
  Company Number: US-BAXTER-2008BH001836

PATIENT
  Age: 39 Year
  Sex: Female
  Weight: 79 kg

DRUGS (4)
  1. HEPARIN SODIUM [Suspect]
     Indication: ANTICOAGULANT THERAPY
     Route: 058
     Dates: start: 20080210, end: 20080228
  2. VITAMIN TAB [Concomitant]
     Indication: VITAMIN SUPPLEMENTATION
     Dosage: DOSE UNIT:UNKNOWN
     Route: 048
  3. FOLIC ACID [Concomitant]
     Indication: VITAMIN SUPPLEMENTATION
     Dosage: DOSE UNIT:UNKNOWN
     Route: 048
  4. LOVENOX [Concomitant]
     Indication: ANTICOAGULANT THERAPY
     Dosage: DOSE UNIT:UNKNOWN
     Route: 058
     Dates: start: 20070801, end: 20080209

REACTIONS (7)
  - DIZZINESS [None]
  - DRUG EXPOSURE DURING PREGNANCY [None]
  - FATIGUE [None]
  - HEADACHE [None]
  - HEART RATE INCREASED [None]
  - PHARYNGOLARYNGEAL PAIN [None]
  - PYREXIA [None]
